FAERS Safety Report 6746598-X (Version None)
Quarter: 2010Q2

REPORT INFORMATION
  Report Type: 
  Country: None (occurrence: None)
  Receive Date: 20100528
  Receipt Date: 20091020
  Transmission Date: 20101027
  Serious: No
  Sender: FDA-Public Use
  Company Number: US-ASTRAZENECA-2009SE31793

PATIENT

DRUGS (1)
  1. PRILOSEC OTC [Suspect]
     Dosage: 1 TABLET, 1 /DAY
     Route: 048

REACTIONS (3)
  - DIARRHOEA [None]
  - DRY MOUTH [None]
  - FREQUENT BOWEL MOVEMENTS [None]
